FAERS Safety Report 14089562 (Version 3)
Quarter: 2017Q4

REPORT INFORMATION
  Report Type: Spontaneous
  Country: FR (occurrence: FR)
  Receive Date: 20171013
  Receipt Date: 20171025
  Transmission Date: 20180321
  Serious: Yes (Hospitalization, Other)
  Sender: FDA-Public Use
  Company Number: FR-009507513-1710FRA004135

PATIENT
  Sex: Male

DRUGS (2)
  1. ISENTRESS [Suspect]
     Active Substance: RALTEGRAVIR POTASSIUM
     Dosage: UNK
     Route: 048
     Dates: start: 201710
  2. ISENTRESS [Suspect]
     Active Substance: RALTEGRAVIR POTASSIUM
     Dosage: 400 MG
     Route: 048
     Dates: end: 20171006

REACTIONS (4)
  - Gastrointestinal tube insertion [Unknown]
  - Adverse event [Unknown]
  - Wrong technique in product usage process [Unknown]
  - Incorrect route of drug administration [Unknown]
